FAERS Safety Report 8563515-0 (Version None)
Quarter: 2012Q3

REPORT INFORMATION
  Report Type: 
  Country: None (occurrence: None)
  Receive Date: 20120802
  Receipt Date: 20120723
  Transmission Date: 20120928
  Serious: Yes (Other)
  Sender: FDA-Public Use
  Company Number: US-009507513-1207USA011484

PATIENT

DRUGS (7)
  1. ZOCOR [Suspect]
     Dosage: 20 MG, QD
     Route: 048
  2. SPIRIVA [Concomitant]
  3. LANSOPRAZOLE [Concomitant]
  4. ASPIRIN [Concomitant]
  5. CIPROFLOXACIN [Suspect]
     Dosage: 750 MG, BID
     Route: 048
  6. FLUTICASONE PROPIONATE/SALMETEROL [Concomitant]
  7. FUROSEMIDE [Concomitant]

REACTIONS (2)
  - RENAL FAILURE ACUTE [None]
  - DEHYDRATION [None]
